FAERS Safety Report 10413833 (Version 1)
Quarter: 2014Q3

REPORT INFORMATION
  Report Type: Spontaneous
  Country: IN (occurrence: None)
  Receive Date: 20140825
  Receipt Date: 20140825
  Transmission Date: 20150326
  Serious: Yes (Hospitalization)
  Sender: FDA-Public Use
  Company Number: IN-002979

PATIENT
  Age: 65 Year
  Sex: Male

DRUGS (2)
  1. SODIUM STIBOGLUCONATE [Suspect]
     Active Substance: SODIUM STIBOGLUCONATE
     Indication: VISCERAL LEISHMANIASIS
  2. MILTEFOSINE [Suspect]
     Active Substance: MILTEFOSINE
     Indication: VISCERAL LEISHMANIASIS

REACTIONS (3)
  - Drug ineffective [None]
  - Ototoxicity [None]
  - Drug resistance [None]
